FAERS Safety Report 5243068-5 (Version None)
Quarter: 2007Q1

REPORT INFORMATION
  Report Type: 
  Country: None (occurrence: None)
  Receive Date: 20070221
  Receipt Date: 20070213
  Transmission Date: 20070707
  Serious: Yes (Hospitalization)
  Sender: FDA-Public Use
  Company Number: NL-BOEHRINGER INGELHEIM PHARMACEUTICALS, INC.-2007-NL-00073NL

PATIENT
  Sex: Female

DRUGS (12)
  1. SPIRIVA [Suspect]
     Indication: CHRONIC OBSTRUCTIVE PULMONARY DISEASE
     Route: 055
     Dates: start: 20060508, end: 20060919
  2. COMBIVENT [Suspect]
     Dosage: 2DD PER PARIBOY
     Route: 055
  3. ENALAPRILI MALEAS [Concomitant]
     Dosage: 2DD20MG
  4. FUROSEMIDE [Concomitant]
     Dosage: MANE 40MG
  5. SERETIDE AEROSOL [Concomitant]
     Dosage: STRENGTH: 25/50MCG
  6. OXAZEPAMUM [Concomitant]
     Dosage: PRN
  7. SPIRONOLACTONUM [Concomitant]
     Dosage: 1DD25MG
  8. COLISTIN [Concomitant]
     Dosage: STRENGHT: 1,000,000IU IN 3ML SOLUTION
  9. ACENOCOUMAROL PCH [Concomitant]
     Dosage: PRESCRIPTION INTENSIVE CARE FOR THROMBOTIC PATIENTS
  10. AMLODIPINUM MALEATE [Concomitant]
     Dosage: 1DD10MG
  11. ALVESCO 40 AEROSOL [Concomitant]
     Dosage: STRENGTH: 40MCG/DO
     Route: 055
  12. DORMICUM [Concomitant]
     Dosage: AS REQUIRED

REACTIONS (1)
  - URINARY RETENTION [None]
